FAERS Safety Report 20702853 (Version 1)
Quarter: 2022Q2

REPORT INFORMATION
  Report Type: Spontaneous
  Country: IN (occurrence: IN)
  Receive Date: 20220412
  Receipt Date: 20220412
  Transmission Date: 20220720
  Serious: Yes (Other)
  Sender: FDA-Public Use
  Company Number: IN-ENDO PHARMACEUTICALS INC-2022-002486

PATIENT
  Age: 64 Year
  Sex: Male

DRUGS (2)
  1. PRAMIPEXOLE DIHYDROCHLORIDE [Suspect]
     Active Substance: PRAMIPEXOLE DIHYDROCHLORIDE
     Indication: Parkinson^s disease
     Dosage: 3 MG, UNKNOWN (DOSE CONSUMED DURING MALADAPTIVE USE)
     Route: 065
  2. PRAMIPEXOLE DIHYDROCHLORIDE [Suspect]
     Active Substance: PRAMIPEXOLE DIHYDROCHLORIDE
     Dosage: 1.5 MG, UNKNOWN (PRESCRIBED DOSE-THERAPEUTIC USE)
     Route: 065

REACTIONS (4)
  - Drug abuse [Unknown]
  - Impulse-control disorder [Unknown]
  - Hypersexuality [Unknown]
  - Therapeutic response unexpected [Unknown]
